FAERS Safety Report 25946929 (Version 4)
Quarter: 2025Q4

REPORT INFORMATION
  Report Type: Report from Study
  Country: US (occurrence: US)
  Receive Date: 20251022
  Receipt Date: 20251226
  Transmission Date: 20260118
  Serious: Yes (Other)
  Sender: ABBVIE
  Company Number: US-ABBVIE-6510781

PATIENT
  Age: 68 Year
  Sex: Male

DRUGS (1)
  1. SKYRIZI [Suspect]
     Active Substance: RISANKIZUMAB-RZAA
     Indication: Crohn^s disease
     Route: 058
     Dates: start: 20250321

REACTIONS (4)
  - Large intestinal stenosis [Not Recovered/Not Resolved]
  - Fall [Unknown]
  - Joint dislocation [Recovering/Resolving]
  - Parkinson^s disease [Unknown]

NARRATIVE: CASE EVENT DATE: 20250101
